FAERS Safety Report 8282051-2 (Version None)
Quarter: 2012Q2

REPORT INFORMATION
  Report Type: 
  Country: None (occurrence: None)
  Receive Date: 20120413
  Receipt Date: 20120405
  Transmission Date: 20120825
  Serious: No
  Sender: FDA-Public Use
  Company Number: GR-SANOFI-AVENTIS-2012SA024460

PATIENT
  Sex: Female

DRUGS (1)
  1. ARAVA [Suspect]
     Route: 065

REACTIONS (1)
  - EXPOSURE VIA FATHER [None]
